FAERS Safety Report 19846635 (Version 2)
Quarter: 2023Q4

REPORT INFORMATION
  Report Type: Report from Study
  Country: US (occurrence: US)
  Receive Date: 20210917
  Receipt Date: 20231011
  Transmission Date: 20240110
  Serious: Yes (Hospitalization, Other)
  Sender: FDA-Public Use
  Company Number: US-ACCORD-239001

PATIENT
  Age: 63 Year
  Sex: Male

DRUGS (1)
  1. CLOZAPINE [Suspect]
     Active Substance: CLOZAPINE
     Indication: Product used for unknown indication
     Route: 048

REACTIONS (1)
  - Neutrophilia [Recovered/Resolved]

NARRATIVE: CASE EVENT DATE: 20210903
